FAERS Safety Report 9234450 (Version 1)
Quarter: 2013Q2

REPORT INFORMATION
  Report Type: Spontaneous
  Country: US (occurrence: US)
  Receive Date: 20130416
  Receipt Date: 20130416
  Transmission Date: 20140414
  Serious: Yes (Hospitalization)
  Sender: FDA-Public Use
  Company Number: US-GLAXOSMITHKLINE-A1014429A

PATIENT
  Age: 76 Year
  Sex: Female
  Weight: 97 kg

DRUGS (1)
  1. PAXIL CR [Suspect]
     Indication: PRODUCT USED FOR UNKNOWN INDICATION
     Dosage: 25MG UNKNOWN
     Route: 065
     Dates: start: 20090206

REACTIONS (1)
  - Hospitalisation [Recovered/Resolved]
